FAERS Safety Report 7326088-6 (Version None)
Quarter: 2011Q1

REPORT INFORMATION
  Report Type: 
  Country: None (occurrence: None)
  Receive Date: 20110302
  Receipt Date: 20110223
  Transmission Date: 20110831
  Serious: Yes (Other)
  Sender: FDA-Public Use
  Company Number: IL-ROCHE-757553

PATIENT
  Sex: Female

DRUGS (1)
  1. ISOTRETINOIN [Suspect]
     Indication: ACNE
     Dosage: STRENGTH AND FORMULATION :20MG, 40MG
     Route: 048
     Dates: end: 20100601

REACTIONS (2)
  - NO ADVERSE EVENT [None]
  - PREGNANCY [None]
